FAERS Safety Report 16277069 (Version 3)
Quarter: 2019Q2

REPORT INFORMATION
  Report Type: Spontaneous
  Country: US (occurrence: US)
  Receive Date: 20190506
  Receipt Date: 20190624
  Transmission Date: 20190711
  Serious: No
  Sender: FDA-Public Use
  Company Number: US-PFIZER INC-2019186360

PATIENT
  Age: 56 Year
  Sex: Male

DRUGS (1)
  1. REVATIO [Suspect]
     Active Substance: SILDENAFIL CITRATE
     Indication: PULMONARY ARTERIAL HYPERTENSION
     Dosage: UNK

REACTIONS (5)
  - Anxiety [Unknown]
  - Fatigue [Unknown]
  - Panic reaction [Unknown]
  - Dyspnoea [Unknown]
  - Hyperventilation [Unknown]
